FAERS Safety Report 5598212-7 (Version None)
Quarter: 2008Q1

REPORT INFORMATION
  Report Type: 
  Country: None (occurrence: None)
  Receive Date: 20080122
  Receipt Date: 20080110
  Transmission Date: 20080703
  Serious: Yes (Other)
  Sender: FDA-Public Use
  Company Number: US-BAYER-200810773NA

PATIENT
  Sex: Female

DRUGS (1)
  1. YASMIN [Suspect]
     Route: 048
     Dates: start: 20030101, end: 20050105

REACTIONS (5)
  - DRUG DOSE OMISSION [None]
  - KIDNEY INFECTION [None]
  - NASOPHARYNGITIS [None]
  - PAIN [None]
  - URINARY TRACT INFECTION [None]
